FAERS Safety Report 4995007-X (Version None)
Quarter: 2006Q2

REPORT INFORMATION
  Report Type: 
  Country: None (occurrence: None)
  Receive Date: 20060503
  Receipt Date: 20060418
  Transmission Date: 20061013
  Serious: Yes (Hospitalization)
  Sender: FDA-Public Use
  Company Number: 2006PL000008

PATIENT
  Age: 44 Year
  Sex: Female
  Weight: 68.0396 kg

DRUGS (6)
  1. MERCAPTOPURINE [Suspect]
     Indication: COLITIS ULCERATIVE
     Dosage: 50 MG; QD; PO
     Route: 048
     Dates: start: 20060228, end: 20060327
  2. ASACOL [Concomitant]
  3. LIPITOR /NET/ [Concomitant]
  4. SYNTHROID [Concomitant]
  5. NEXIUM [Concomitant]
  6. ASACOL [Concomitant]

REACTIONS (5)
  - BONE MARROW FAILURE [None]
  - DECREASED APPETITE [None]
  - FATIGUE [None]
  - NAUSEA [None]
  - WEIGHT DECREASED [None]
